FAERS Safety Report 15369959 (Version 1)
Quarter: 2018Q3

REPORT INFORMATION
  Report Type: Spontaneous
  Country: CA (occurrence: CA)
  Receive Date: 20180911
  Receipt Date: 20180911
  Transmission Date: 20181010
  Serious: Yes (Other)
  Sender: FDA-Public Use
  Company Number: CA-CELLTRION INC.-2018CA021908

PATIENT

DRUGS (6)
  1. PURINETHOL [Concomitant]
     Active Substance: MERCAPTOPURINE
     Dosage: UNK
  2. INFLECTRA [Suspect]
     Active Substance: INFLIXIMAB-DYYB
     Indication: COLITIS ULCERATIVE
     Dosage: 400 MG, CYCLIC (WEEK 2,6, THEN EVERY 8 WEEKS);
     Route: 042
     Dates: start: 20180712, end: 20180712
  3. INFLECTRA [Suspect]
     Active Substance: INFLIXIMAB-DYYB
     Dosage: 400 MG, CYCLIC (WEEK 2,6, THEN EVERY 8 WEEKS);
     Route: 042
     Dates: start: 20180802
  4. PREDNISONE. [Concomitant]
     Active Substance: PREDNISONE
     Dosage: UNK
  5. INFLECTRA [Suspect]
     Active Substance: INFLIXIMAB-DYYB
     Dosage: 400 MG, CYCLIC (WEEK 2,6, THEN EVERY 8 WEEKS);
     Route: 042
     Dates: start: 20180802
  6. INFLECTRA [Suspect]
     Active Substance: INFLIXIMAB-DYYB
     Dosage: 400 MG, CYCLIC (WEEK 2,6, THEN EVERY 8 WEEKS);
     Route: 042
     Dates: start: 20180829

REACTIONS (3)
  - Condition aggravated [Unknown]
  - Product use issue [Unknown]
  - Rectal haemorrhage [Unknown]

NARRATIVE: CASE EVENT DATE: 20180731
